FAERS Safety Report 8310564-3 (Version None)
Quarter: 2012Q2

REPORT INFORMATION
  Report Type: 
  Country: None (occurrence: None)
  Receive Date: 20120425
  Receipt Date: 20120417
  Transmission Date: 20120825
  Serious: Yes (Hospitalization)
  Sender: FDA-Public Use
  Company Number: US-BAYER-2012-000131

PATIENT
  Age: 21 Year
  Sex: Female
  Weight: 84 kg

DRUGS (12)
  1. NUBAIN [Concomitant]
     Indication: PAIN
  2. YASMIN [Suspect]
     Indication: ORAL CONTRACEPTION
     Dosage: UNK
     Route: 048
     Dates: start: 20050101, end: 20080101
  3. NSAID'S [Concomitant]
  4. YAZ [Suspect]
     Indication: ORAL CONTRACEPTION
     Dosage: UNK
     Route: 048
     Dates: start: 20050101, end: 20080101
  5. LOESTRIN FE 1/20 [Concomitant]
     Dosage: UNK
  6. YAZ [Suspect]
     Indication: ACNE
  7. YASMIN [Suspect]
     Indication: ACNE
  8. ANTI-ASTHMATICS [Concomitant]
     Dosage: UNK
     Dates: start: 20010101
  9. CIPROFLOXACIN HCL [Concomitant]
     Route: 042
  10. PHENERGAN HCL [Concomitant]
     Indication: NAUSEA
  11. OVCON-35 [Concomitant]
     Dosage: UNK
  12. ORTHO-NOVUM 1/50 21 [Concomitant]
     Dosage: UNK

REACTIONS (3)
  - WEIGHT INCREASED [None]
  - GALLBLADDER DISORDER [None]
  - CHOLECYSTITIS ACUTE [None]
